FAERS Safety Report 5187818-5 (Version None)
Quarter: 2006Q4

REPORT INFORMATION
  Report Type: 
  Country: None (occurrence: None)
  Receive Date: 20061221
  Receipt Date: 20061213
  Transmission Date: 20070319
  Serious: Yes (Hospitalization)
  Sender: FDA-Public Use
  Company Number: NO-JNJFOC-20060603539

PATIENT
  Sex: Male

DRUGS (11)
  1. REMICADE [Suspect]
     Indication: CROHN'S DISEASE
     Route: 042
  2. REMICADE [Suspect]
     Indication: ARTHRITIS
     Route: 042
  3. REMICADE [Suspect]
     Indication: ANKYLOSING SPONDYLITIS
     Route: 042
  4. PREDNISOLONE [Concomitant]
     Indication: RHEUMATOID ARTHRITIS
     Dosage: 5-20MG. IN MAY-2006 THE DOSE WAS 5MG
     Route: 048
  5. METHOTREXATE SODIUM [Concomitant]
     Indication: CROHN'S DISEASE
     Route: 048
  6. METHOTREXATE SODIUM [Concomitant]
     Indication: ARTHRITIS
     Route: 048
  7. METHOTREXATE SODIUM [Concomitant]
     Indication: ANKYLOSING SPONDYLITIS
     Route: 048
  8. BRUFEN RETARD [Concomitant]
     Indication: RHEUMATOID ARTHRITIS
     Route: 048
  9. NOBLIGAN [Concomitant]
     Indication: RHEUMATOID ARTHRITIS
     Dosage: 3-4 TIMES DAILY
     Route: 048
  10. NYCOPLUS FOLSYRE [Concomitant]
     Indication: RHEUMATOID ARTHRITIS
     Route: 048
  11. METHOTREXATE SODIUM [Concomitant]
     Indication: RHEUMATOID ARTHRITIS
     Route: 048

REACTIONS (3)
  - CHEST PAIN [None]
  - LUNG INFILTRATION [None]
  - PERICARDITIS [None]
